FAERS Safety Report 22591779 (Version 1)
Quarter: 2023Q2

REPORT INFORMATION
  Report Type: Spontaneous
  Country: US (occurrence: US)
  Receive Date: 20230612
  Receipt Date: 20230612
  Transmission Date: 20230722
  Serious: No
  Sender: FDA-Public Use
  Company Number: US-RIGEL PHARMACEUTICALS, INC.-2023FOS000066

PATIENT
  Sex: Female

DRUGS (1)
  1. TAVALISSE [Suspect]
     Active Substance: FOSTAMATINIB
     Indication: Immune thrombocytopenia
     Dosage: 100 MG, BID
     Route: 048
     Dates: start: 20221222

REACTIONS (6)
  - Feeling hot [Unknown]
  - Headache [Unknown]
  - Product dose omission issue [Unknown]
  - Blood pressure increased [Unknown]
  - Nausea [Unknown]
  - Diarrhoea [Unknown]
